FAERS Safety Report 14376406 (Version 1)
Quarter: 2018Q1

REPORT INFORMATION
  Report Type: Spontaneous
  Country: US (occurrence: US)
  Receive Date: 20180110
  Receipt Date: 20180110
  Transmission Date: 20180509
  Serious: Yes (Other)
  Sender: FDA-Public Use
  Company Number: None

PATIENT
  Age: 33 Year
  Sex: Male
  Weight: 79.83 kg

DRUGS (1)
  1. ZUBSOLV [Suspect]
     Active Substance: BUPRENORPHINE HYDROCHLORIDE\NALOXONE HYDROCHLORIDE
     Indication: DRUG DEPENDENCE
     Dosage: 5.7/1.4MG 3 DAILY SUBLINGUAL
     Route: 060
     Dates: start: 20160318, end: 20171227

REACTIONS (3)
  - Drug ineffective [None]
  - Nausea [None]
  - Disease recurrence [None]

NARRATIVE: CASE EVENT DATE: 20171227
